FAERS Safety Report 21365365 (Version 1)
Quarter: 2022Q3

REPORT INFORMATION
  Report Type: Report from Study
  Country: US (occurrence: US)
  Receive Date: 20220922
  Receipt Date: 20220922
  Transmission Date: 20221027
  Serious: Yes (Hospitalization, Other)
  Sender: FDA-Public Use
  Company Number: US-TEVA-2018-US-948477

PATIENT
  Age: 64 Year
  Sex: Female

DRUGS (3)
  1. HYDROCHLOROTHIAZIDE [Suspect]
     Active Substance: HYDROCHLOROTHIAZIDE
     Indication: Hypertension
     Route: 065
  2. HYDROCHLOROTHIAZIDE [Suspect]
     Active Substance: HYDROCHLOROTHIAZIDE
     Dosage: 12.5 MILLIGRAM DAILY;
     Route: 065
  3. SPORANOX [Suspect]
     Active Substance: ITRACONAZOLE
     Indication: Acute pulmonary histoplasmosis
     Route: 065

REACTIONS (8)
  - Hypokalaemia [Recovering/Resolving]
  - Acute kidney injury [Unknown]
  - Lung infiltration [Unknown]
  - Lymphadenitis [Unknown]
  - Lower respiratory tract congestion [Unknown]
  - Hyponatraemia [Unknown]
  - Oedema peripheral [Recovering/Resolving]
  - Hypertension [Recovering/Resolving]
